FAERS Safety Report 6746644-3 (Version None)
Quarter: 2010Q2

REPORT INFORMATION
  Report Type: 
  Country: None (occurrence: None)
  Receive Date: 20100528
  Receipt Date: 20100312
  Transmission Date: 20101027
  Serious: No
  Sender: FDA-Public Use
  Company Number: US-ASTRAZENECA-2010SE10889

PATIENT
  Sex: Female
  Weight: 61.2 kg

DRUGS (2)
  1. PRILOSEC OTC [Suspect]
     Route: 048
     Dates: start: 20091202, end: 20100302
  2. PRIVACID [Suspect]
     Route: 048
     Dates: start: 20100303

REACTIONS (2)
  - DRUG INEFFECTIVE [None]
  - DYSPEPSIA [None]
